FAERS Safety Report 25679211 (Version 1)
Quarter: 2025Q3

REPORT INFORMATION
  Report Type: Spontaneous
  Country: IN (occurrence: IN)
  Receive Date: 20250814
  Receipt Date: 20250814
  Transmission Date: 20251021
  Serious: Yes (Hospitalization, Other)
  Sender: PHARMOBEDIENT CONSULTING, LLC
  Company Number: IN-Pharmobedient-000075

PATIENT
  Age: 84 Year
  Sex: Male
  Weight: 60 kg

DRUGS (7)
  1. ATRACURIUM BESYLATE [Interacting]
     Active Substance: ATRACURIUM BESYLATE
     Indication: Paralysis
  2. DONEPEZIL [Interacting]
     Active Substance: DONEPEZIL
     Indication: Dementia
     Route: 048
  3. OLANZAPINE [Concomitant]
     Active Substance: OLANZAPINE
     Indication: Dementia
     Route: 048
  4. QUETIAPINE [Concomitant]
     Active Substance: QUETIAPINE
     Indication: Dementia
     Route: 048
  5. GLYCOPYRROLATE [Concomitant]
     Active Substance: GLYCOPYRROLATE
     Indication: Premedication
  6. MIDAZOLAM [Concomitant]
     Active Substance: MIDAZOLAM
     Indication: Premedication
  7. PROPOFOL [Concomitant]
     Active Substance: PROPOFOL
     Indication: Product used for unknown indication

REACTIONS (2)
  - Drug interaction [Unknown]
  - Drug resistance [Unknown]
